FAERS Safety Report 6638111-2 (Version None)
Quarter: 2010Q1

REPORT INFORMATION
  Report Type: 
  Country: None (occurrence: None)
  Receive Date: 20100301
  Receipt Date: 20090114
  Transmission Date: 20100710
  Serious: Yes (Death)
  Sender: FDA-Public Use
  Company Number: RB-8248-2009

PATIENT
  Age: 34 Year
  Sex: Male

DRUGS (4)
  1. HEROIN [Suspect]
     Indication: DRUG USE FOR UNKNOWN INDICATION
     Dosage: UNKNOWN DOSING
     Dates: end: 20081231
  2. SUBOXONE [Suspect]
     Indication: DRUG DEPENDENCE
     Dosage: 8 MG BID SUBLINGUAL
     Route: 060
     Dates: start: 20080712
  3. PAXIL [Concomitant]
  4. SEROQUEL [Concomitant]

REACTIONS (1)
  - OVERDOSE [None]
